FAERS Safety Report 17447009 (Version 1)
Quarter: 2020Q1

REPORT INFORMATION
  Report Type: Other
  Country: US (occurrence: US)
  Receive Date: 20200221
  Receipt Date: 20200221
  Transmission Date: 20200409
  Serious: Yes (Life-Threatening, Hospitalization, Other)
  Sender: FDA-Public Use
  Company Number: US-US-PROVELL PHARMACEUTICALS LLC-9146500

PATIENT
  Age: 31 Year
  Sex: Male

DRUGS (3)
  1. LEVOTHYROXINE. [Suspect]
     Active Substance: LEVOTHYROXINE
     Indication: HYPOTHYROIDISM
  2. LEVOTHYROXINE. [Suspect]
     Active Substance: LEVOTHYROXINE
     Dosage: DOSE INCREASED
     Route: 042
  3. LEVOTHYROXINE. [Suspect]
     Active Substance: LEVOTHYROXINE
     Dosage: DOSE INCREASED
     Route: 048

REACTIONS (4)
  - Metabolic acidosis [Unknown]
  - Circulatory collapse [Unknown]
  - Contraindicated product administered [Recovered/Resolved]
  - Adrenocortical insufficiency acute [Unknown]
